FAERS Safety Report 4396540-4 (Version None)
Quarter: 2004Q2

REPORT INFORMATION
  Report Type: 
  Country: None (occurrence: None)
  Receive Date: 20040621
  Receipt Date: 20031015
  Transmission Date: 20050107
  Serious: Yes (Death)
  Sender: FDA-Public Use
  Company Number: USA-2003-0010310

PATIENT
  Age: 24 Year
  Sex: Male
  Weight: 112 kg

DRUGS (5)
  1. OXYCODONE HCL [Suspect]
  2. SALICYLIC ACID (SALICYLIC ACID) [Suspect]
  3. CANNABIS (CANNABIS) [Suspect]
  4. CAFFEINE (CAFFEINE) [Suspect]
  5. NICOTINE [Suspect]

REACTIONS (1)
  - ACCIDENTAL OVERDOSE [None]
